FAERS Safety Report 9133139 (Version 1)
Quarter: 2013Q1

REPORT INFORMATION
  Report Type: Spontaneous
  Country: None (occurrence: US)
  Receive Date: 20130120
  Receipt Date: 20130120
  Transmission Date: 20140127
  Serious: No
  Sender: FDA-Public Use
  Company Number: US-ALLERGAN-1212758US

PATIENT
  Age: 65 Year
  Sex: Female
  Weight: 61.68 kg

DRUGS (5)
  1. BOTOX? [Suspect]
     Indication: MIGRAINE
     Dosage: UNK, SINGLE
     Route: 030
     Dates: start: 20120711, end: 20120711
  2. BOTOX? [Suspect]
     Indication: TEMPOROMANDIBULAR JOINT SYNDROME
  3. XANAX [Concomitant]
     Indication: PRODUCT USED FOR UNKNOWN INDICATION
     Route: 048
  4. AMITRIPTYLINE [Concomitant]
     Indication: PRODUCT USED FOR UNKNOWN INDICATION
     Route: 048
  5. OMEPRAZOLE [Concomitant]
     Indication: PRODUCT USED FOR UNKNOWN INDICATION

REACTIONS (13)
  - Laryngitis [Recovered/Resolved]
  - Weight decreased [Unknown]
  - Facial paresis [Unknown]
  - Mastication disorder [Unknown]
  - Drooling [Unknown]
  - Injection site pain [Unknown]
  - Facial paresis [Recovered/Resolved]
  - Dyskinesia [Unknown]
  - Dry mouth [Unknown]
  - Speech disorder [Unknown]
  - Hypoaesthesia oral [Unknown]
  - Memory impairment [Unknown]
  - Headache [Unknown]
